FAERS Safety Report 10162385 (Version 2)
Quarter: 2014Q2

REPORT INFORMATION
  Report Type: Report from Study
  Country: US (occurrence: US)
  Receive Date: 20140509
  Receipt Date: 20140529
  Transmission Date: 20141212
  Serious: Yes (Other)
  Sender: FDA-Public Use
  Company Number: US-BAYER-2014-068829

PATIENT
  Age: 55 Year
  Sex: Female

DRUGS (1)
  1. STIVARGA [Suspect]
     Indication: COLON CANCER
     Dosage: 160 MG, QD
     Route: 048
     Dates: start: 20140415, end: 20140416

REACTIONS (4)
  - Hypertension [None]
  - Heart rate increased [None]
  - Headache [None]
  - Sinusitis [None]
